FAERS Safety Report 9506808 (Version 4)
Quarter: 2013Q4

REPORT INFORMATION
  Report Type: Spontaneous
  Country: IE (occurrence: IE)
  Receive Date: 20130909
  Receipt Date: 20131204
  Transmission Date: 20140711
  Serious: Yes (Death, Hospitalization, Other)
  Sender: FDA-Public Use
  Company Number: IE-BIOGENIDEC-2013BI084009

PATIENT
  Sex: Male

DRUGS (7)
  1. AVONEX [Suspect]
     Indication: RELAPSING-REMITTING MULTIPLE SCLEROSIS
     Route: 030
     Dates: start: 2003
  2. AVONEX [Suspect]
     Indication: RELAPSING-REMITTING MULTIPLE SCLEROSIS
     Route: 030
     Dates: end: 201307
  3. APROVEL [Concomitant]
  4. EMCOR [Concomitant]
  5. LIPITOR [Concomitant]
  6. VENTOLIN INHALER [Concomitant]
  7. SPIRIVA [Concomitant]

REACTIONS (6)
  - Progressive multiple sclerosis [Unknown]
  - Multiple sclerosis [Unknown]
  - Dysphagia [Unknown]
  - Mobility decreased [Unknown]
  - Pneumonia aspiration [Fatal]
  - Chronic lymphocytic leukaemia [Unknown]
